FAERS Safety Report 17410007 (Version 1)
Quarter: 2020Q1

REPORT INFORMATION
  Report Type: Spontaneous
  Country: US (occurrence: US)
  Receive Date: 20200212
  Receipt Date: 20200212
  Transmission Date: 20200409
  Serious: Yes (Other)
  Sender: FDA-Public Use
  Company Number: US-PFIZER INC-2020059487

PATIENT
  Age: 46 Year
  Sex: Male
  Weight: 106.59 kg

DRUGS (5)
  1. ADDERALL [Concomitant]
     Active Substance: AMPHETAMINE ASPARTATE\AMPHETAMINE SULFATE\DEXTROAMPHETAMINE SACCHARATE\DEXTROAMPHETAMINE SULFATE
     Indication: ATTENTION DEFICIT/HYPERACTIVITY DISORDER
     Dosage: 15 MG, 1X/DAY
     Route: 048
  2. ADDERALL [Concomitant]
     Active Substance: AMPHETAMINE ASPARTATE\AMPHETAMINE SULFATE\DEXTROAMPHETAMINE SACCHARATE\DEXTROAMPHETAMINE SULFATE
     Indication: AFFECTIVE DISORDER
  3. PROPRANOL [Concomitant]
     Active Substance: PROPRANOLOL HYDROCHLORIDE
     Indication: MENTAL DISORDER
     Dosage: 0.5 MG, 1X/DAY
     Route: 048
  4. DEPAKOTE [Concomitant]
     Active Substance: DIVALPROEX SODIUM
     Indication: SEIZURE
     Dosage: 1500 MG, DAILY
     Route: 048
  5. DILANTIN [Suspect]
     Active Substance: PHENYTOIN
     Dosage: 125 MG, UNK (THINKS 125MG, ORANGE AND WHITE, UNABLE TO PROVIDE FREQUENCY)
     Dates: end: 1999

REACTIONS (3)
  - Gingival disorder [Not Recovered/Not Resolved]
  - Urogram abnormal [Not Recovered/Not Resolved]
  - Shunt malfunction [Not Recovered/Not Resolved]
